FAERS Safety Report 8791594 (Version 1)
Quarter: 2012Q4

REPORT INFORMATION
  Report Type: 
  Country: IT (occurrence: IT)
  Receive Date: 20120918
  Receipt Date: 20120918
  Transmission Date: 20130627
  Serious: Yes (Other)
  Sender: FDA-Public Use
  Company Number: PHHY2012IT080438

PATIENT
  Age: 76 Year
  Sex: Female

DRUGS (6)
  1. ATENOLOL+CHLORTHALIDONE [Suspect]
     Indication: HYPERTENSION
     Route: 048
     Dates: start: 20110101, end: 20120905
  2. MANIDIPINE HYDROCHLORIDE [Suspect]
     Indication: HYPERTENSION
     Dosage: 20 mg, UNK
     Route: 048
     Dates: start: 20120101, end: 20120905
  3. CARDIOASPIRIN [Concomitant]
     Dosage: 100 mg, UNK
     Route: 048
  4. PRAVASTATIN [Concomitant]
  5. ALPRAZOLAM [Concomitant]
  6. CITALOPRAM [Concomitant]

REACTIONS (9)
  - Feeling hot [Recovered/Resolved]
  - Hypokalaemia [Recovered/Resolved]
  - Hypotension [Recovered/Resolved]
  - Malaise [Recovered/Resolved]
  - Presyncope [Recovered/Resolved]
  - Pyrexia [Recovered/Resolved]
  - Blood glucose increased [Recovered/Resolved]
  - Lymphocyte count decreased [Unknown]
  - Neutrophil count increased [Unknown]
